FAERS Safety Report 15883017 (Version 2)
Quarter: 2019Q1

REPORT INFORMATION
  Report Type: Report from Study
  Country: US (occurrence: US)
  Receive Date: 20190129
  Receipt Date: 20190315
  Transmission Date: 20190417
  Serious: No
  Sender: FDA-Public Use
  Company Number: US-ROCHE-2254060

PATIENT
  Sex: Female

DRUGS (1)
  1. OCREVUS [Suspect]
     Active Substance: OCRELIZUMAB
     Indication: PRIMARY PROGRESSIVE MULTIPLE SCLEROSIS
     Route: 065
     Dates: start: 20180717

REACTIONS (1)
  - Infection [Unknown]
